FAERS Safety Report 26059466 (Version 1)
Quarter: 2025Q4

REPORT INFORMATION
  Report Type: Spontaneous
  Country: JP (occurrence: JP)
  Receive Date: 20251118
  Receipt Date: 20251118
  Transmission Date: 20260117
  Serious: Yes (Hospitalization)
  Sender: AMGEN
  Company Number: JP-AMGEN-JPNSP2025224553

PATIENT

DRUGS (7)
  1. BEVACIZUMAB [Suspect]
     Active Substance: BEVACIZUMAB
     Indication: Product used for unknown indication
     Dosage: 15 MILLIGRAM/SQ. METER
     Route: 065
  2. CISPLATIN [Concomitant]
     Active Substance: CISPLATIN
     Dosage: 75 MILLIGRAM/SQ. METER ON DAY 1
     Route: 065
  3. PEMETREXED [Concomitant]
     Active Substance: PEMETREXED
     Dosage: 500 MILLIGRAM/SQ. METER ON DAY 1
     Route: 065
  4. DEXAMETHASONE [Concomitant]
     Active Substance: DEXAMETHASONE
     Dosage: 9.9 GRAM INFUSION ON DAY 1
     Route: 065
  5. DEXAMETHASONE [Concomitant]
     Active Substance: DEXAMETHASONE
     Dosage: 8 GRAM ON DAYS 2-4
     Route: 048
  6. PALONOSETRON [Concomitant]
     Active Substance: PALONOSETRON
     Dosage: 0.75 MILLIGRAM ON DAY 1
     Route: 040
  7. APREPITANT [Concomitant]
     Active Substance: APREPITANT

REACTIONS (1)
  - Hiccups [Unknown]
